FAERS Safety Report 9237653 (Version 2)
Quarter: 2013Q4

REPORT INFORMATION
  Report Type: Spontaneous
  Country: US (occurrence: US)
  Receive Date: 20130418
  Receipt Date: 20131113
  Transmission Date: 20140711
  Serious: Yes (Hospitalization)
  Sender: FDA-Public Use
  Company Number: US-RANBAXY-2013US-67900

PATIENT
  Age: 52 Year
  Sex: Female

DRUGS (2)
  1. CLARITHROMYCIN [Suspect]
     Indication: SINUSITIS
     Dosage: 500 MG, BID
     Route: 065
  2. PREDNISONE [Concomitant]
     Indication: SINUSITIS
     Dosage: 60 MG, QID
     Route: 065

REACTIONS (2)
  - Mania [Recovering/Resolving]
  - Psychotic disorder [Recovering/Resolving]
